FAERS Safety Report 15861009 (Version 1)
Quarter: 2019Q1

REPORT INFORMATION
  Report Type: Spontaneous
  Country: ES (occurrence: ES)
  Receive Date: 20190124
  Receipt Date: 20190124
  Transmission Date: 20190417
  Serious: Yes (Life-Threatening, Hospitalization, Other)
  Sender: FDA-Public Use
  Company Number: ES-AUROBINDO-AUR-APL-2019-002715

PATIENT
  Age: 32 Year
  Sex: Female

DRUGS (3)
  1. SINTROM [Interacting]
     Active Substance: ACENOCOUMAROL
     Indication: AORTIC VALVE REPLACEMENT
     Dosage: 14 MILLIGRAM, EVERY WEEK, SP
     Route: 048
     Dates: start: 20180119, end: 20180203
  2. COLCHIMAX                          /00728901/ [Concomitant]
     Active Substance: COLCHICINE\DICYCLOMINE HYDROCHLORIDE
     Indication: PERICARDITIS
     Dosage: 0.5 DOSAGE FORM, TWO TIMES A DAY, 1/2-0-1/2
     Route: 048
     Dates: start: 20180122, end: 20180203
  3. IBUPROFEN. [Suspect]
     Active Substance: IBUPROFEN
     Indication: PERICARDITIS
     Dosage: 600 MILLIGRAM, 3 TIMES A DAY, 1-1-1
     Route: 048
     Dates: start: 20180122, end: 20180203

REACTIONS (2)
  - Shock haemorrhagic [Recovered/Resolved]
  - Haemothorax [Recovered/Resolved]

NARRATIVE: CASE EVENT DATE: 20180203
